FAERS Safety Report 8257356-1 (Version None)
Quarter: 2012Q2

REPORT INFORMATION
  Report Type: 
  Country: None (occurrence: None)
  Receive Date: 20120403
  Receipt Date: 20120322
  Transmission Date: 20120825
  Serious: No
  Sender: FDA-Public Use
  Company Number: FR-ACTELION-A-CH2012-60243

PATIENT

DRUGS (1)
  1. TRACLEER [Suspect]
     Indication: MATERNAL EXPOSURE DURING PREGNANCY
     Route: 064

REACTIONS (2)
  - NORMAL NEWBORN [None]
  - FOETAL EXPOSURE DURING PREGNANCY [None]
